FAERS Safety Report 7554706-6 (Version None)
Quarter: 2011Q2

REPORT INFORMATION
  Report Type: 
  Country: None (occurrence: None)
  Receive Date: 20110615
  Receipt Date: 20110615
  Transmission Date: 20111010
  Serious: No
  Sender: FDA-Public Use
  Company Number: None

PATIENT
  Age: 63 Year
  Sex: Male

DRUGS (1)
  1. GLEEVEC [Suspect]
     Dates: start: 20090123, end: 20100503

REACTIONS (15)
  - ASCITES [None]
  - LIVER INJURY [None]
  - RENAL IMPAIRMENT [None]
  - ASPARTATE AMINOTRANSFERASE INCREASED [None]
  - OEDEMA PERIPHERAL [None]
  - BLOOD ALKALINE PHOSPHATASE INCREASED [None]
  - BLOOD BILIRUBIN INCREASED [None]
  - HEPATOTOXICITY [None]
  - NAUSEA [None]
  - VOMITING [None]
  - FLUID OVERLOAD [None]
  - CHROMATURIA [None]
  - DECREASED APPETITE [None]
  - ASTHENIA [None]
  - ALANINE AMINOTRANSFERASE INCREASED [None]
